FAERS Safety Report 19100965 (Version 3)
Quarter: 2021Q2

REPORT INFORMATION
  Report Type: Report from Study
  Country: US (occurrence: US)
  Receive Date: 20210407
  Receipt Date: 20210623
  Transmission Date: 20210717
  Serious: Yes (Hospitalization)
  Sender: FDA-Public Use
  Company Number: NVSC2021US075673

PATIENT
  Age: 10 Year
  Sex: Male

DRUGS (2)
  1. ILARIS [Suspect]
     Active Substance: CANAKINUMAB
     Dosage: 165 MG, EVERY 4 WEEKS
     Route: 058
     Dates: start: 20210323
  2. ILARIS [Suspect]
     Active Substance: CANAKINUMAB
     Indication: STILL^S DISEASE
     Dosage: 165 MG, EVERY 4 WEEKS
     Route: 058
     Dates: start: 20210222

REACTIONS (6)
  - Incorrect dose administered [Unknown]
  - Illness [Unknown]
  - Swelling face [Recovered/Resolved]
  - Hypersensitivity [Unknown]
  - Tooth abscess [Unknown]
  - Pain in jaw [Recovered/Resolved]

NARRATIVE: CASE EVENT DATE: 20210222
